FAERS Safety Report 6802821-4 (Version None)
Quarter: 2010Q2

REPORT INFORMATION
  Report Type: 
  Country: None (occurrence: None)
  Receive Date: 20100628
  Receipt Date: 20100614
  Transmission Date: 20101027
  Serious: Yes (Other)
  Sender: FDA-Public Use
  Company Number: PHHY2010SE16817

PATIENT
  Sex: Female

DRUGS (9)
  1. ACLASTA [Suspect]
     Indication: OSTEOPOROSIS
     Dosage: 5 MG
     Route: 042
     Dates: start: 20100311
  2. WARAN [Concomitant]
  3. SELOKEN ZOC [Concomitant]
  4. LOSARTAN POTASSIUM [Concomitant]
  5. NORVASC [Concomitant]
  6. GLYBURIDE [Concomitant]
  7. CALCIUM CARBONATE [Concomitant]
  8. AZOPT [Concomitant]
  9. XALATAN [Concomitant]

REACTIONS (12)
  - ARRHYTHMIA [None]
  - BLOOD PRESSURE ABNORMAL [None]
  - CARDIAC FIBRILLATION [None]
  - DIZZINESS [None]
  - EYE PRURITUS [None]
  - GINGIVAL DISORDER [None]
  - HEADACHE [None]
  - HEART RATE IRREGULAR [None]
  - IRITIS [None]
  - OCULAR HYPERAEMIA [None]
  - PHOTOPHOBIA [None]
  - TOOTH DISORDER [None]
